FAERS Safety Report 8782837 (Version 2)
Quarter: 2012Q4

REPORT INFORMATION
  Report Type: 
  Country: FR (occurrence: FR)
  Receive Date: 20120913
  Receipt Date: 20121002
  Transmission Date: 20130627
  Serious: Yes (Other)
  Sender: FDA-Public Use
  Company Number: FR-GLAXOSMITHKLINE-B0827548A

PATIENT
  Age: 24 None
  Sex: Male
  Weight: 100 kg

DRUGS (2)
  1. AVAMYS [Suspect]
     Indication: VASOMOTOR RHINITIS
     Dosage: 2PUFF Per day
     Route: 045
     Dates: start: 20120720, end: 20120823
  2. BILASTINE [Suspect]
     Indication: VASOMOTOR RHINITIS
     Dosage: 1TAB Per day
     Route: 048
     Dates: start: 20120720, end: 20120823

REACTIONS (5)
  - Liver function test abnormal [Recovered/Resolved]
  - Transaminases increased [Recovered/Resolved]
  - Gamma-glutamyltransferase increased [Recovered/Resolved]
  - Diarrhoea [Recovered/Resolved]
  - Abdominal pain [Recovered/Resolved]
